FAERS Safety Report 7902075-1 (Version None)
Quarter: 2011Q4

REPORT INFORMATION
  Report Type: 
  Country: None (occurrence: None)
  Receive Date: 20111108
  Receipt Date: 20111028
  Transmission Date: 20120403
  Serious: Yes (Life-Threatening)
  Sender: FDA-Public Use
  Company Number: US-BAYER-2011-058354

PATIENT
  Age: 42 Year
  Sex: Female
  Weight: 64.399 kg

DRUGS (1)
  1. YASMIN [Suspect]
     Indication: CONTRACEPTION
     Dosage: UNK
     Dates: start: 20061101, end: 20070701

REACTIONS (11)
  - ANXIETY [None]
  - MUSCULAR WEAKNESS [None]
  - PAIN [None]
  - INJURY [None]
  - CEREBROVASCULAR ACCIDENT [None]
  - PHOTOPSIA [None]
  - PARAESTHESIA [None]
  - ANHEDONIA [None]
  - VERTIGO [None]
  - SPEECH DISORDER [None]
  - DIPLOPIA [None]
